FAERS Safety Report 24554358 (Version 4)
Quarter: 2024Q4

REPORT INFORMATION
  Report Type: Report from Study
  Country: PT (occurrence: PT)
  Receive Date: 20241028
  Receipt Date: 20241203
  Transmission Date: 20250114
  Serious: Yes (Other)
  Sender: ABBVIE
  Company Number: PT-ABBVIE-5969124

PATIENT
  Age: 69 Year
  Sex: Female

DRUGS (22)
  1. CARBIDOPA\LEVODOPA [Suspect]
     Active Substance: CARBIDOPA\LEVODOPA
     Indication: Multiple system atrophy
     Dosage: 20 MG + 5 MG, LAST ADMIN DATE: 2024?FREQUENCY TEXT: MORN:10CC;MAINT:4.4CC/H;EXTR:2CC?STOPPED IN 2024
     Route: 050
     Dates: start: 20240724
  2. CARBIDOPA\LEVODOPA [Suspect]
     Active Substance: CARBIDOPA\LEVODOPA
     Dosage: 20 MG + 5 MG, FIRST ADMIN DATE: 2024?FREQUENCY TEXT: MORN:16CC;MAINT:5.4CC/H;EXTR:3CC
     Route: 050
     Dates: start: 2024, end: 20241128
  3. CARBIDOPA\LEVODOPA [Suspect]
     Active Substance: CARBIDOPA\LEVODOPA
     Dosage: 20 MG + 5 MG MORN:16CC;MAINT:5.7CC/H;EXTR:3CC
     Route: 050
     Dates: start: 20241128
  4. METHOTREXATE [Concomitant]
     Active Substance: METHOTREXATE
     Indication: Product used for unknown indication
     Dosage: START DATE TEXT: BEFORE DUODOPA
     Route: 048
  5. PANTOPRAZOLE [Concomitant]
     Active Substance: PANTOPRAZOLE
     Indication: Product used for unknown indication
     Dosage: 1 TABLET, FORM STRENGTH: 40 MG, START DATE TEXT: BEFORE DUODOPA, FREQUENCY TEXT: AT FASTING
     Route: 048
  6. CHOLECALCIFEROL [Concomitant]
     Active Substance: CHOLECALCIFEROL
     Indication: Product used for unknown indication
     Dosage: START DATE TEXT: BEFORE DUODOPA
     Route: 048
  7. XADAGO [Concomitant]
     Active Substance: SAFINAMIDE MESYLATE
     Indication: Product used for unknown indication
     Dosage: 2 TABLET, FORM STRENGTH: 100 MG, FREQUENCY TEXT: AT BREAKFAST, START DATE TEXT: BEFORE DUODOPA
     Route: 048
  8. QUETIAPINE [Concomitant]
     Active Substance: QUETIAPINE
     Indication: Product used for unknown indication
     Dosage: 1 TABLET
     Route: 048
     Dates: start: 20241111, end: 20241111
  9. QUETIAPINE [Concomitant]
     Active Substance: QUETIAPINE
     Indication: Product used for unknown indication
     Dosage: 1 TABLET,FORM STRENGTH: 100 MG, FREQUENCY TEXT: AT DINNER, START DATE TEXT: BEFORE DUODOPA
     Route: 048
  10. CARVEDILOL [Concomitant]
     Active Substance: CARVEDILOL
     Indication: Product used for unknown indication
     Dosage: 2 TABLET
     Route: 048
  11. CARVEDILOL [Concomitant]
     Active Substance: CARVEDILOL
     Indication: Product used for unknown indication
     Dosage: 2 TABLET
     Route: 048
  12. CARVEDILOL [Concomitant]
     Active Substance: CARVEDILOL
     Indication: Product used for unknown indication
     Dosage: 2 TABLET,FORM STRENGTH: 25 MG, FREQUENCY TEXT: 1 AT BREAKFAST + 1 AT LUNCH,  START DATE TEXT: BEF...
     Route: 048
  13. RIVOTRIL [Concomitant]
     Active Substance: CLONAZEPAM
     Indication: Product used for unknown indication
     Dosage: 1.5 TABLET, FORM STRENGTH: 0.5 MG, ?FREQUENCY TEXT: 1/2 AT BREAKFAST + 1 AT DINNER, ?START DATE T...
     Route: 048
  14. LERCANIDIPINE [Concomitant]
     Active Substance: LERCANIDIPINE
     Indication: Product used for unknown indication
     Dosage: 1.5 TABLET
     Route: 048
  15. LERCANIDIPINE [Concomitant]
     Active Substance: LERCANIDIPINE
     Indication: Product used for unknown indication
     Dosage: 1.5 TABLET, FORM STRENGTH: 10 MG, FREQUENCY TEXT: 1 AT BREAKFAST + 1/2 AT DINNER, START DATE TEXT...
     Route: 048
  16. DARBEPOETIN ALFA [Concomitant]
     Active Substance: DARBEPOETIN ALFA
     Indication: Product used for unknown indication
     Dosage: START DATE TEXT: BEFORE DUODOPA
     Route: 048
  17. AMANTADINE HYDROCHLORIDE [Concomitant]
     Active Substance: AMANTADINE HYDROCHLORIDE
     Indication: Product used for unknown indication
     Dosage: 2 TABLET, FORM STRENGTH: 100 MG, FREQUENCY TEXT: AT BREAKFAST AND AT LUNCH,START DATE TEXT: BEFOR...
     Route: 048
     Dates: end: 20241111
  18. FOLIC ACID [Concomitant]
     Active Substance: FOLIC ACID
     Indication: Product used for unknown indication
     Dosage: FREQUENCY TEXT: 2 TABLETS ON SUNDAYS, START DATE TEXT: BEFORE DUODOPA 1.5 TABLET
     Route: 048
  19. EDOXABAN TOSYLATE [Concomitant]
     Active Substance: EDOXABAN TOSYLATE
     Indication: Thrombosis
     Dosage: 1 TABLET, ?START DATE TEXT: AFTER START OF DUODOPA
     Route: 048
  20. ARANESP [Concomitant]
     Active Substance: DARBEPOETIN ALFA
     Indication: Product used for unknown indication
     Dosage: START DATE TEXT: BEFORE DUODOPA
     Route: 048
  21. Lepicortinolo (prednisolone) [Concomitant]
     Indication: Product used for unknown indication
     Dosage: 1.5 TABLET
     Route: 048
  22. LEVOTHYROXINE [Concomitant]
     Active Substance: LEVOTHYROXINE
     Indication: Product used for unknown indication
     Dosage: 1 TABLET, FORM STRENGTH: 0.1 MG, FREQUENCY TEXT: AT FASTING, ?START DATE TEXT: BEFORE DUODOPA
     Route: 048

REACTIONS (5)
  - Respiratory tract infection [Not Recovered/Not Resolved]
  - Hallucination [Recovering/Resolving]
  - Hyponatraemia [Not Recovered/Not Resolved]
  - C-reactive protein increased [Not Recovered/Not Resolved]
  - Anaemia [Not Recovered/Not Resolved]

NARRATIVE: CASE EVENT DATE: 20241001
